FAERS Safety Report 9836661 (Version 1)
Quarter: 2014Q1

REPORT INFORMATION
  Report Type: Spontaneous
  Country: US (occurrence: None)
  Receive Date: 20140116
  Receipt Date: 20140116
  Transmission Date: 20141002
  Serious: No
  Sender: FDA-Public Use
  Company Number: None

PATIENT
  Age: 78 Year
  Sex: Male

DRUGS (1)
  1. XTANDI 40MG APUS [Suspect]
     Indication: PROSTATE CANCER
     Route: 048
     Dates: start: 201308

REACTIONS (2)
  - Decreased appetite [None]
  - Weight decreased [None]
